FAERS Safety Report 18785220 (Version 1)
Quarter: 2021Q1

REPORT INFORMATION
  Report Type: Report from Study
  Country: CA (occurrence: CA)
  Receive Date: 20210125
  Receipt Date: 20210125
  Transmission Date: 20210419
  Serious: Yes (Hospitalization, Other)
  Sender: FDA-Public Use
  Company Number: CA-SHIRE-CA201905660AA

PATIENT

DRUGS (3)
  1. HIZENTRA [Concomitant]
     Active Substance: HUMAN IMMUNOGLOBULIN G
     Indication: PRODUCT USED FOR UNKNOWN INDICATION
     Dosage: UNK
     Route: 065
     Dates: start: 20170613, end: 20181127
  2. GAMMAGARD LIQUID [Suspect]
     Active Substance: HUMAN IMMUNOGLOBULIN G
     Indication: PRIMARY IMMUNODEFICIENCY SYNDROME
     Dosage: 5 GRAM, 1X/WEEK
     Route: 058
     Dates: start: 20181204
  3. GAMMAGARD LIQUID [Suspect]
     Active Substance: HUMAN IMMUNOGLOBULIN G
     Dosage: 5 GRAM, 1X/WEEK
     Route: 058
     Dates: start: 20181204

REACTIONS (6)
  - Sinusitis [Recovering/Resolving]
  - Pneumonia [Unknown]
  - Oral candidiasis [Unknown]
  - Illness [Unknown]
  - Cough [Unknown]
  - Cystitis [Unknown]
